FAERS Safety Report 7057012-1 (Version None)
Quarter: 2010Q4

REPORT INFORMATION
  Report Type: 
  Country: None (occurrence: None)
  Receive Date: 20101021
  Receipt Date: 20101021
  Transmission Date: 20110411
  Serious: Yes (Other)
  Sender: FDA-Public Use
  Company Number: None

PATIENT
  Age: 17 Year
  Sex: Female

DRUGS (1)
  1. VALACYCLOVIR [Suspect]
     Indication: HERPES SIMPLEX
     Dosage: 1 GM QD ORAL
     Route: 048
     Dates: start: 20100401, end: 20100501

REACTIONS (2)
  - HERPES SIMPLEX [None]
  - PRODUCT SUBSTITUTION ISSUE [None]
